FAERS Safety Report 5518672-7 (Version None)
Quarter: 2007Q4

REPORT INFORMATION
  Report Type: 
  Country: None (occurrence: None)
  Receive Date: 20071113
  Receipt Date: 20071025
  Transmission Date: 20080405
  Serious: Yes (Other)
  Sender: FDA-Public Use
  Company Number: 8027785

PATIENT
  Sex: Female

DRUGS (3)
  1. KEPPRA [Suspect]
     Indication: EPILEPSY
     Dosage: 3000 MG 2/D
     Dates: start: 20010101
  2. WARFARIN SODIUM [Concomitant]
  3. ASPIRIN [Concomitant]

REACTIONS (10)
  - AMNESIA [None]
  - CONFUSIONAL STATE [None]
  - DISTURBANCE IN ATTENTION [None]
  - GASTROINTESTINAL DISORDER [None]
  - MOOD SWINGS [None]
  - MUSCULAR WEAKNESS [None]
  - PULMONARY EMBOLISM [None]
  - SLEEP DISORDER [None]
  - SOMNOLENCE [None]
  - WEIGHT DECREASED [None]
